FAERS Safety Report 7149395-9 (Version None)
Quarter: 2010Q4

REPORT INFORMATION
  Report Type: 
  Country: None (occurrence: None)
  Receive Date: 20101209
  Receipt Date: 20101201
  Transmission Date: 20110411
  Serious: Yes (Death)
  Sender: FDA-Public Use
  Company Number: GB-MEDIMMUNE-MEDI-0011883

PATIENT
  Sex: Male
  Weight: 3.14 kg

DRUGS (7)
  1. SYNAGIS [Suspect]
     Indication: PROPHYLAXIS
     Route: 030
     Dates: start: 20101020, end: 20101020
  2. SYNAGIS [Suspect]
  3. CALCIUM-SANDOZ [Concomitant]
  4. ALFACALCIDOL [Concomitant]
  5. SODIUM FEREDETATE [Concomitant]
  6. RANITIDINE [Concomitant]
  7. GAVISCON [Concomitant]

REACTIONS (1)
  - SUDDEN INFANT DEATH SYNDROME [None]
